FAERS Safety Report 6722888-1 (Version None)
Quarter: 2010Q2

REPORT INFORMATION
  Report Type: 
  Country: None (occurrence: None)
  Receive Date: 20100512
  Receipt Date: 20100512
  Transmission Date: 20101027
  Serious: Yes (Death)
  Sender: FDA-Public Use
  Company Number: None

PATIENT
  Age: 53 Year
  Sex: Male
  Weight: 94.8 kg

DRUGS (2)
  1. LAPATINIB [Suspect]
     Indication: COLORECTAL CANCER METASTATIC
     Dosage: 1250 MG PO DAILY
     Route: 048
     Dates: start: 20090220, end: 20090403
  2. CEPECITABINE [Suspect]
     Dosage: 2000 MG/M^2BID DAYS 1-14
     Dates: start: 20090220, end: 20090327

REACTIONS (3)
  - COLORECTAL CANCER METASTATIC [None]
  - HYPERBILIRUBINAEMIA [None]
  - MALIGNANT NEOPLASM PROGRESSION [None]
